FAERS Safety Report 8811020 (Version 1)
Quarter: 2012Q4

REPORT INFORMATION
  Report Type: Spontaneous
  Country: US (occurrence: None)
  Receive Date: 20120925
  Receipt Date: 20120925
  Transmission Date: 20130627
  Serious: Yes (Hospitalization)
  Sender: FDA-Public Use
  Company Number: None

PATIENT
  Age: 43 Year
  Sex: Female
  Weight: 46.27 kg

DRUGS (1)
  1. GELNIQUE [Suspect]
     Dosage: 6-09
Current
1g of 100mg/g Daily TransDermal
     Route: 062
     Dates: start: 200906

REACTIONS (2)
  - Mydriasis [None]
  - Accidental exposure to product [None]
